FAERS Safety Report 4421414-X (Version None)
Quarter: 2004Q3

REPORT INFORMATION
  Report Type: 
  Country: None (occurrence: None)
  Receive Date: 20040706
  Receipt Date: 20040322
  Transmission Date: 20050211
  Serious: Yes (Other)
  Sender: FDA-Public Use
  Company Number: 235236

PATIENT
  Age: 11 Year
  Sex: Male

DRUGS (2)
  1. NOVOLOG [Suspect]
     Indication: DIABETES MELLITUS INSULIN-DEPENDENT
     Dosage: 44 IU, QD, SUBCUTAN.-PUMP
     Route: 058
     Dates: start: 20030201
  2. MINIMED 508 INSULIN PUMP [Concomitant]

REACTIONS (1)
  - BLOOD GLUCOSE INCREASED [None]
